FAERS Safety Report 8822686 (Version 2)
Quarter: 2012Q4

REPORT INFORMATION
  Report Type: 
  Country: IT (occurrence: IT)
  Receive Date: 20121003
  Receipt Date: 20121007
  Transmission Date: 20130627
  Serious: Yes (Hospitalization)
  Sender: FDA-Public Use
  Company Number: IT-BRISTOL-MYERS SQUIBB COMPANY-16991622

PATIENT
  Age: 64 Year
  Sex: Male

DRUGS (8)
  1. COUMADIN TABS 5 MG [Suspect]
     Indication: PROPHYLAXIS
     Dates: start: 20120301, end: 20120705
  2. CLOPIDOGREL BISULFATE [Suspect]
     Indication: CORONARY ANGIOPLASTY
     Dosage: 1df:1 dose
     Route: 048
     Dates: start: 20120301, end: 20120710
  3. CARDIOASPIRIN [Suspect]
     Indication: CORONARY ANGIOPLASTY
     Dosage: Tab
     Route: 048
     Dates: start: 20120301, end: 20120705
  4. BISOPROLOL FUMARATE [Concomitant]
  5. ZOFENOPRIL [Concomitant]
     Dosage: Zofenopril Calcio
  6. FUROSEMIDE [Concomitant]
  7. METFORMIN [Concomitant]
     Dosage: Metformina Cloridrato
  8. SPIRONOLACTONE [Concomitant]
     Dosage: Spironolattone

REACTIONS (2)
  - Intestinal haemorrhage [Recovering/Resolving]
  - Anaemia [Recovering/Resolving]
